FAERS Safety Report 6949932-0 (Version None)
Quarter: 2010Q3

REPORT INFORMATION
  Report Type: 
  Country: None (occurrence: None)
  Receive Date: 20100828
  Receipt Date: 20100118
  Transmission Date: 20110219
  Serious: No
  Sender: FDA-Public Use
  Company Number: US-ABBOTT-10P-163-0620619-00

PATIENT
  Sex: Female
  Weight: 63.56 kg

DRUGS (7)
  1. NIASPAN [Suspect]
     Indication: HYPERLIPIDAEMIA
     Dates: start: 20091201, end: 20100114
  2. NIASPAN [Suspect]
     Indication: PROPHYLAXIS
  3. SYNTHROID [Concomitant]
     Indication: HYPOTHYROIDISM
  4. NORVASC [Concomitant]
     Indication: HYPERTENSION
  5. INDERAL [Concomitant]
     Indication: HYPERTENSION
  6. FORTEO [Concomitant]
     Indication: INTERVERTEBRAL DISC DEGENERATION
  7. METAMUCIL-2 [Concomitant]
     Indication: CONSTIPATION

REACTIONS (1)
  - DIARRHOEA [None]
